FAERS Safety Report 14855830 (Version 18)
Quarter: 2022Q1

REPORT INFORMATION
  Report Type: Spontaneous
  Country: GB (occurrence: GB)
  Receive Date: 20180507
  Receipt Date: 20220106
  Transmission Date: 20220424
  Serious: Yes (Hospitalization, Other)
  Sender: FDA-Public Use
  Company Number: GB-JNJFOC-20180336475

PATIENT
  Age: 35 Year
  Sex: Female

DRUGS (14)
  1. SERTRALINE HYDROCHLORIDE [Suspect]
     Active Substance: SERTRALINE HYDROCHLORIDE
     Indication: Schizophrenia
     Dosage: 100 MG, UNK
     Route: 065
  2. SERTRALINE HYDROCHLORIDE [Suspect]
     Active Substance: SERTRALINE HYDROCHLORIDE
     Dosage: 50 MG, UNK
     Route: 065
  3. SERTRALINE HYDROCHLORIDE [Suspect]
     Active Substance: SERTRALINE HYDROCHLORIDE
     Dosage: 150 MG, UNK
     Route: 065
  4. OMEPRAZOLE [Suspect]
     Active Substance: OMEPRAZOLE
     Indication: Schizophrenia
     Dosage: 3 MG
     Route: 065
  5. OMEPRAZOLE [Suspect]
     Active Substance: OMEPRAZOLE
     Dosage: UNK
  6. OLANZAPINE [Suspect]
     Active Substance: OLANZAPINE
     Indication: Schizophrenia
     Dosage: 5 MG
     Route: 065
  7. OLANZAPINE [Suspect]
     Active Substance: OLANZAPINE
     Dosage: 10 MG
     Route: 065
  8. OLANZAPINE [Suspect]
     Active Substance: OLANZAPINE
     Dosage: 15 MG
  9. RISPERIDONE [Suspect]
     Active Substance: RISPERIDONE
     Indication: Schizophrenia
     Dosage: 3 MG, UNK
     Route: 048
  10. DIAZEPAM [Suspect]
     Active Substance: DIAZEPAM
     Indication: Schizophrenia
     Dosage: 15 MG
     Route: 065
  11. DIAZEPAM [Suspect]
     Active Substance: DIAZEPAM
     Dosage: 5 MG
     Route: 065
  12. ARIPIPRAZOLE [Suspect]
     Active Substance: ARIPIPRAZOLE
     Indication: Schizophrenia
     Dosage: 10 MG, UNK
     Route: 065
  13. ARIPIPRAZOLE [Suspect]
     Active Substance: ARIPIPRAZOLE
     Dosage: 5 MG
     Route: 065
  14. RISPERDAL [Suspect]
     Active Substance: RISPERIDONE
     Indication: Schizophrenia
     Dosage: 3 MG
     Route: 048

REACTIONS (8)
  - Sepsis [Unknown]
  - Schizophrenia [Unknown]
  - Disease recurrence [Unknown]
  - Dehydration [Unknown]
  - Social avoidant behaviour [Unknown]
  - Treatment noncompliance [Unknown]
  - Off label use [Unknown]
  - Drug ineffective for unapproved indication [Unknown]
